FAERS Safety Report 10273680 (Version 3)
Quarter: 2015Q1

REPORT INFORMATION
  Report Type: Report from Study
  Country: CN (occurrence: CN)
  Receive Date: 20140702
  Receipt Date: 20150122
  Transmission Date: 20150720
  Serious: Yes (Hospitalization)
  Sender: FDA-Public Use
  Company Number: CN-GLAXOSMITHKLINE-B0964102D

PATIENT
  Age: 23 Year
  Sex: Female
  Weight: 48 kg

DRUGS (6)
  1. BELIMUMAB [Suspect]
     Active Substance: BELIMUMAB
     Indication: SYSTEMIC LUPUS ERYTHEMATOSUS
     Route: 042
     Dates: start: 20140109
  2. HUMAN IMMUNOGLOBULIN [Concomitant]
     Active Substance: HUMAN IMMUNOGLOBULIN G
     Indication: SYSTEMIC LUPUS ERYTHEMATOSUS
     Route: 042
     Dates: start: 20140624
  3. SIMVASTATIN. [Concomitant]
     Active Substance: SIMVASTATIN
     Route: 048
     Dates: start: 20140605
  4. TACROLIMUS. [Concomitant]
     Active Substance: TACROLIMUS
     Indication: SYSTEMIC LUPUS ERYTHEMATOSUS
     Route: 048
     Dates: start: 20140624
  5. ASPIRIN. [Concomitant]
     Active Substance: ASPIRIN
     Indication: PROPHYLAXIS
     Route: 048
     Dates: start: 20140607
  6. ALFACALCIDOL [Concomitant]
     Active Substance: ALFACALCIDOL
     Indication: OSTEOPOROSIS PROPHYLAXIS
     Route: 048
     Dates: start: 20140604

REACTIONS (1)
  - Herpes zoster [Recovered/Resolved]

NARRATIVE: CASE EVENT DATE: 20140620
